FAERS Safety Report 7247350-1 (Version None)
Quarter: 2011Q1

REPORT INFORMATION
  Report Type: 
  Country: None (occurrence: None)
  Receive Date: 20110127
  Receipt Date: 20110117
  Transmission Date: 20110831
  Serious: Yes (Hospitalization)
  Sender: FDA-Public Use
  Company Number: FR-SANOFI-AVENTIS-2011SA003026

PATIENT
  Age: 64 Year
  Sex: Male

DRUGS (13)
  1. ELOXATIN [Suspect]
     Route: 013
     Dates: start: 20101115, end: 20101115
  2. KARDEGIC [Concomitant]
  3. SOLU-MEDROL [Suspect]
     Route: 042
     Dates: start: 20101115, end: 20101115
  4. OXYCODONE HCL [Concomitant]
     Route: 042
     Dates: start: 20101115, end: 20101115
  5. CARDENSIEL [Concomitant]
  6. EMEND [Concomitant]
     Route: 048
     Dates: start: 20101115, end: 20101115
  7. MOPRAL [Concomitant]
  8. THYROID HORMONES [Concomitant]
  9. OFLOCET [Concomitant]
     Dates: start: 20101102
  10. PREVISCAN [Concomitant]
  11. VANCOMYCINE [Concomitant]
     Dates: start: 20101102
  12. TOMUDEX [Suspect]
     Route: 042
     Dates: start: 20101115, end: 20101115
  13. ZOPHREN [Concomitant]
     Route: 048
     Dates: start: 20101115, end: 20101115

REACTIONS (3)
  - PYREXIA [None]
  - CHILLS [None]
  - CYANOSIS [None]
